FAERS Safety Report 4643331-2 (Version None)
Quarter: 2005Q2

REPORT INFORMATION
  Report Type: 
  Country: None (occurrence: None)
  Receive Date: 20050422
  Receipt Date: 20050217
  Transmission Date: 20051028
  Serious: Yes (Other)
  Sender: FDA-Public Use
  Company Number: 2005036639

PATIENT
  Age: 6 Year
  Sex: Male
  Weight: 22 kg

DRUGS (1)
  1. VFEND [Suspect]
     Indication: ASPERGILLOSIS
     Dosage: 1 IN 1 D INTRAVENOUS
     Route: 042
     Dates: start: 20040101

REACTIONS (2)
  - MULTIPLE FRACTURES [None]
  - VITAMIN D DECREASED [None]
